FAERS Safety Report 8237808-0 (Version None)
Quarter: 2012Q1

REPORT INFORMATION
  Report Type: 
  Country: None (occurrence: None)
  Receive Date: 20120309
  Receipt Date: 20110118
  Transmission Date: 20120608
  Serious: Yes (Other)
  Sender: FDA-Public Use
  Company Number: PHHY2010US41584

PATIENT
  Age: 25 Year
  Sex: Female

DRUGS (7)
  1. EXTAVIA [Suspect]
     Indication: MULTIPLE SCLEROSIS
     Dosage: 0.25 MG, QOD, SUBCUTANEOUS
     Route: 058
     Dates: start: 20100611
  2. STEROIDS NOS (NO INGREDIENTS/SUBSTANCES) [Concomitant]
  3. AMANTADINE HCL [Concomitant]
  4. IBUPROFEN (ADVIL) [Concomitant]
  5. LEXAPRO [Concomitant]
  6. ZOLOFT [Concomitant]
  7. TOPAMAX [Concomitant]

REACTIONS (7)
  - MULTIPLE SCLEROSIS RELAPSE [None]
  - FATIGUE [None]
  - FEELING HOT [None]
  - HYPOAESTHESIA [None]
  - PAIN [None]
  - INJECTION SITE ERYTHEMA [None]
  - INJECTION SITE REACTION [None]
